FAERS Safety Report 8984450 (Version 1)
Quarter: 2012Q4

REPORT INFORMATION
  Report Type: 
  Country: CN (occurrence: CN)
  Receive Date: 20121226
  Receipt Date: 20121226
  Transmission Date: 20130627
  Serious: Yes (Hospitalization)
  Sender: FDA-Public Use
  Company Number: CN-BRISTOL-MYERS SQUIBB COMPANY-17219676

PATIENT
  Age: 30 Year
  Sex: Male

DRUGS (1)
  1. BARACLUDE [Suspect]
     Route: 048

REACTIONS (2)
  - Pyrexia [Unknown]
  - Proteinuria [Unknown]
